FAERS Safety Report 9440299 (Version 1)
Quarter: 2013Q3

REPORT INFORMATION
  Report Type: Spontaneous
  Country: DK (occurrence: DK)
  Receive Date: 20130805
  Receipt Date: 20130805
  Transmission Date: 20140515
  Serious: No
  Sender: FDA-Public Use
  Company Number: DK-ELI_LILLY_AND_COMPANY-DK201307009317

PATIENT
  Sex: Male

DRUGS (4)
  1. ZYPREXA [Suspect]
     Indication: PARANOIA
     Dosage: 20 MG, UNK
  2. ZYPADHERA [Interacting]
     Indication: PARANOIA
     Dosage: 405 ML, UNKNOWN
     Route: 030
     Dates: start: 201209
  3. ZYPADHERA [Interacting]
     Dosage: 305 ML, 2/M
  4. ANTABUS [Interacting]
     Dosage: UNK
     Dates: start: 2012

REACTIONS (9)
  - Dyspnoea [Unknown]
  - Hyperhidrosis [Unknown]
  - Feeling hot [Unknown]
  - Presyncope [Unknown]
  - Diabetes mellitus [Unknown]
  - Blood glucose decreased [Unknown]
  - Feeling abnormal [Unknown]
  - Drug interaction [Unknown]
  - Prescribed overdose [Unknown]
